FAERS Safety Report 13935568 (Version 1)
Quarter: 2017Q3

REPORT INFORMATION
  Report Type: Spontaneous
  Country: TR (occurrence: TR)
  Receive Date: 20170905
  Receipt Date: 20170905
  Transmission Date: 20171127
  Serious: Yes (Other)
  Sender: FDA-Public Use
  Company Number: PHHY2017TR127871

PATIENT
  Age: 5 Year
  Sex: Female

DRUGS (5)
  1. PATANOL [Suspect]
     Active Substance: OLOPATADINE HYDROCHLORIDE
     Indication: PRODUCT USED FOR UNKNOWN INDICATION
     Dosage: UNK, BID
     Route: 047
  2. EXOCIN [Suspect]
     Active Substance: OFLOXACIN
     Indication: PRODUCT USED FOR UNKNOWN INDICATION
     Dosage: UNK, QID
     Route: 047
  3. VIGAMOX [Suspect]
     Active Substance: MOXIFLOXACIN HYDROCHLORIDE
     Indication: MOLLUSCUM CONTAGIOSUM
     Dosage: UNK, 5QD
     Route: 047
  4. DEXA-SINE [Suspect]
     Active Substance: DEXAMETHASONE SODIUM PHOSPHATE
     Indication: PRODUCT USED FOR UNKNOWN INDICATION
     Dosage: UNK, TID
     Route: 047
  5. TEARS NATURALE FREE [Concomitant]
     Active Substance: DEXTRAN 70\HYPROMELLOSE 2910 (4000 MPA.S)
     Indication: EYE LUBRICATION THERAPY
     Dosage: UNK, 5QD
     Route: 047

REACTIONS (6)
  - Molluscum contagiosum [Unknown]
  - Eyelid oedema [Unknown]
  - Product use issue [Unknown]
  - Product use in unapproved indication [Unknown]
  - Ocular hyperaemia [Unknown]
  - Lacrimation increased [Unknown]
